FAERS Safety Report 7583723-5 (Version None)
Quarter: 2011Q2

REPORT INFORMATION
  Report Type: 
  Country: None (occurrence: None)
  Receive Date: 20110630
  Receipt Date: 20110623
  Transmission Date: 20111010
  Serious: Yes (Hospitalization)
  Sender: FDA-Public Use
  Company Number: B0729599A

PATIENT
  Sex: Female

DRUGS (7)
  1. LASIX [Concomitant]
  2. URSODIOL [Concomitant]
  3. COUMADIN [Concomitant]
     Route: 048
  4. BISOPROLOL [Concomitant]
  5. LANOXIN [Suspect]
     Indication: ATRIAL FIBRILLATION
     Dosage: .125MG TWICE PER DAY
     Route: 048
     Dates: start: 20110116, end: 20110616
  6. RAMIPRIL [Concomitant]
  7. PANTOPAN [Concomitant]
     Route: 048

REACTIONS (3)
  - SINUS BRADYCARDIA [None]
  - ELECTROCARDIOGRAM REPOLARISATION ABNORMALITY [None]
  - ATRIOVENTRICULAR BLOCK FIRST DEGREE [None]
